FAERS Safety Report 23142157 (Version 1)
Quarter: 2023Q4

REPORT INFORMATION
  Report Type: Spontaneous
  Country: JP (occurrence: JP)
  Receive Date: 20231103
  Receipt Date: 20231103
  Transmission Date: 20240110
  Serious: Yes (Other)
  Sender: FDA-Public Use
  Company Number: JP-DSJP-DSJ-2023-144146

PATIENT

DRUGS (1)
  1. ADALIMUMAB [Suspect]
     Active Substance: ADALIMUMAB\ISOPROPYL ALCOHOL
     Indication: Product used for unknown indication
     Dosage: 40 MILLIGRAM, 5 TIMES IN TOTAL
     Route: 065

REACTIONS (3)
  - Haemorrhage [Recovering/Resolving]
  - Internal haemorrhage [Not Recovered/Not Resolved]
  - Pain [Recovering/Resolving]
